FAERS Safety Report 7376348-8 (Version None)
Quarter: 2011Q1

REPORT INFORMATION
  Report Type: 
  Country: None (occurrence: None)
  Receive Date: 20110316
  Receipt Date: 20110308
  Transmission Date: 20110831
  Serious: Yes (Other)
  Sender: FDA-Public Use
  Company Number: 2010SP004890

PATIENT
  Age: 24 Year
  Sex: Female
  Weight: 89.8122 kg

DRUGS (2)
  1. NUVARING [Suspect]
     Indication: CONTRACEPTION
     Dosage: 1 DF;GM;VAG
     Route: 067
     Dates: start: 20040414, end: 20061001
  2. NUVARING [Suspect]
     Indication: CONTRACEPTION
     Dosage: 1 DF;GM;VAG
     Route: 067
     Dates: start: 20070101

REACTIONS (21)
  - PAPILLOMA VIRAL INFECTION [None]
  - PREGNANCY [None]
  - CYSTITIS [None]
  - CERVICAL DYSPLASIA [None]
  - ANGIOPATHY [None]
  - MIGRAINE [None]
  - PAIN IN EXTREMITY [None]
  - VARICOSE VEIN [None]
  - DRUG EXPOSURE BEFORE PREGNANCY [None]
  - HYDRONEPHROSIS [None]
  - HEART RATE IRREGULAR [None]
  - ANGINA PECTORIS [None]
  - ROAD TRAFFIC ACCIDENT [None]
  - BACK PAIN [None]
  - RENAL FAILURE [None]
  - VENOUS INSUFFICIENCY [None]
  - DYSPNOEA [None]
  - THROMBOSIS [None]
  - ABORTION INCOMPLETE [None]
  - MUSCLE SPASMS [None]
  - OEDEMA PERIPHERAL [None]
